FAERS Safety Report 18258164 (Version 1)
Quarter: 2020Q3

REPORT INFORMATION
  Report Type: Spontaneous
  Country: IN (occurrence: IN)
  Receive Date: 20200911
  Receipt Date: 20200911
  Transmission Date: 20201103
  Serious: Yes (Life-Threatening, Hospitalization)
  Sender: FDA-Public Use
  Company Number: IN-MYLANLABS-2020M1078049

PATIENT
  Age: 43 Year
  Sex: Female

DRUGS (5)
  1. OXALIPLATIN. [Concomitant]
     Active Substance: OXALIPLATIN
     Indication: ADENOCARCINOMA OF COLON
     Dosage: 85 MILLIGRAM/SQ. METER, CYCLE DAY 1
     Route: 065
  2. FLUOROURACIL MYLAN [Suspect]
     Active Substance: FLUOROURACIL
     Indication: ADENOCARCINOMA OF COLON
     Dosage: 400 MILLIGRAM/SQ. METER, CYCLE BOLUS ON DAY 1
     Route: 040
  3. FLUOROURACIL MYLAN [Suspect]
     Active Substance: FLUOROURACIL
     Dosage: 3200 MILLIGRAM/SQ. METER, CYCLE CONTINUOUS INFUSION FOR 46 HOURS
     Route: 042
  4. FOLINIC ACID [Concomitant]
     Active Substance: LEUCOVORIN
     Indication: ADENOCARCINOMA OF COLON
     Dosage: 400 MILLIGRAM/SQ. METER, CYCLE DAY 1
     Route: 065
  5. IRINOTECAN [Concomitant]
     Active Substance: IRINOTECAN
     Indication: ADENOCARCINOMA OF COLON
     Dosage: 165 MILLIGRAM/SQ. METER, CYCLE DAY 1
     Route: 065

REACTIONS (6)
  - Coma [Recovered/Resolved]
  - Diarrhoea [Recovering/Resolving]
  - Urinary incontinence [Recovering/Resolving]
  - Encephalopathy [Recovering/Resolving]
  - Palpitations [Recovering/Resolving]
  - Vomiting [Recovering/Resolving]
